FAERS Safety Report 7466079-8 (Version None)
Quarter: 2011Q2

REPORT INFORMATION
  Report Type: 
  Country: None (occurrence: None)
  Receive Date: 20110509
  Receipt Date: 20100615
  Transmission Date: 20111010
  Serious: No
  Sender: FDA-Public Use
  Company Number: US-ALEXION-A201000704

PATIENT
  Sex: Male

DRUGS (4)
  1. VITAMINS                           /90003601/ [Concomitant]
  2. SOLIRIS [Suspect]
     Indication: PAROXYSMAL NOCTURNAL HAEMOGLOBINURIA
     Dosage: UNK MG, UNK
     Route: 042
  3. VITAMIN B12                        /00056201/ [Concomitant]
     Dosage: ONCE A MONTH
  4. SOLIRIS [Suspect]
     Dosage: 900 MG, Q2WKS
     Route: 042
     Dates: start: 20081001

REACTIONS (1)
  - HAEMOGLOBIN DECREASED [None]
